FAERS Safety Report 9291301 (Version 3)
Quarter: 2013Q3

REPORT INFORMATION
  Report Type: Spontaneous
  Country: AU (occurrence: AU)
  Receive Date: 20130515
  Receipt Date: 20130722
  Transmission Date: 20140515
  Serious: No
  Sender: FDA-Public Use
  Company Number: AU-BAYER-2013-057421

PATIENT
  Sex: Female

DRUGS (1)
  1. CANESTEN CLOTRIMAZOLE THRUSH TREATMENT ONCE PESSARY [Suspect]
     Indication: CANDIDA INFECTION

REACTIONS (2)
  - Exposure during pregnancy [None]
  - Vulvovaginal candidiasis [None]
